FAERS Safety Report 7879536-7 (Version None)
Quarter: 2011Q4

REPORT INFORMATION
  Report Type: 
  Country: None (occurrence: None)
  Receive Date: 20111101
  Receipt Date: 20111019
  Transmission Date: 20120403
  Serious: Yes (Death, Hospitalization)
  Sender: FDA-Public Use
  Company Number: US-GLAXOSMITHKLINE-A0878763A

PATIENT
  Age: 46 Year
  Sex: Male
  Weight: 109.1 kg

DRUGS (5)
  1. MEDROL [Concomitant]
  2. LISINOPRIL [Concomitant]
  3. GLUCOPHAGE [Concomitant]
  4. AVANDIA [Suspect]
     Indication: DIABETES MELLITUS
     Dosage: 4MG TWICE PER DAY
     Route: 048
     Dates: start: 20020801, end: 20080924
  5. VALTREX [Concomitant]

REACTIONS (6)
  - FLUID OVERLOAD [None]
  - CARDIAC ARREST [None]
  - ARRHYTHMIA [None]
  - MYOCARDIAL INFARCTION [None]
  - ARTERIOSCLEROSIS [None]
  - FLUID RETENTION [None]
